FAERS Safety Report 5706753-4 (Version None)
Quarter: 2008Q2

REPORT INFORMATION
  Report Type: 
  Country: None (occurrence: None)
  Receive Date: 20080415
  Receipt Date: 20080415
  Transmission Date: 20081010
  Serious: Yes (Hospitalization)
  Sender: FDA-Public Use
  Company Number: None

PATIENT
  Sex: Male
  Weight: 61.3 kg

DRUGS (9)
  1. DASATINIB [Suspect]
     Indication: SARCOMA
     Dosage: 100 MG DAILY PO
     Route: 048
     Dates: start: 20080211, end: 20080408
  2. ALBUTEROL [Concomitant]
  3. ATARAX [Concomitant]
  4. TENORMIN [Concomitant]
  5. TESSALON [Concomitant]
  6. LIPITOR [Concomitant]
  7. ZESTRIL [Concomitant]
  8. NEURONTIN [Concomitant]
  9. PREDNISONE [Concomitant]

REACTIONS (9)
  - CONSTIPATION [None]
  - COUGH [None]
  - DYSPNOEA [None]
  - FATIGUE [None]
  - MALIGNANT NEOPLASM PROGRESSION [None]
  - METASTASES TO LUNG [None]
  - MUSCULOSKELETAL CHEST PAIN [None]
  - OXYGEN SATURATION DECREASED [None]
  - PLEURAL EFFUSION [None]
